FAERS Safety Report 7072317-6 (Version None)
Quarter: 2010Q4

REPORT INFORMATION
  Report Type: 
  Country: None (occurrence: None)
  Receive Date: 20101029
  Receipt Date: 20100107
  Transmission Date: 20110411
  Serious: No
  Sender: FDA-Public Use
  Company Number: A0838316A

PATIENT
  Age: 65 Year
  Sex: Male

DRUGS (7)
  1. ADVAIR DISKUS 100/50 [Suspect]
     Indication: ASTHMA
     Dosage: 1PUFF PER DAY
     Route: 055
     Dates: start: 20080101
  2. LIPITOR [Concomitant]
  3. MELOXICAM [Concomitant]
  4. ENALAPRIL MALEATE [Concomitant]
  5. ASPIRIN [Concomitant]
  6. NASONEX [Concomitant]
  7. NYSTATIN [Concomitant]

REACTIONS (2)
  - CANDIDIASIS [None]
  - ORAL DISORDER [None]
